FAERS Safety Report 25918838 (Version 1)
Quarter: 2025Q4

REPORT INFORMATION
  Report Type: Spontaneous
  Country: US (occurrence: US)
  Receive Date: 20251014
  Receipt Date: 20251014
  Transmission Date: 20260118
  Serious: Yes (Other)
  Sender: RANBAXY
  Company Number: US-SUN PHARMACEUTICAL INDUSTRIES LTD-2025R1-531183

PATIENT
  Age: 38 Year
  Sex: Female

DRUGS (2)
  1. ISOTRETINOIN [Suspect]
     Active Substance: ISOTRETINOIN
     Indication: Dermatosis
     Dosage: 20 MILLIGRAM, DAILY
     Route: 065
  2. DUPILUMAB [Suspect]
     Active Substance: DUPILUMAB
     Indication: Dermatosis
     Dosage: 300 MILLIGRAM EVERY OTHER WEEK
     Route: 058

REACTIONS (1)
  - Therapy non-responder [Unknown]
